FAERS Safety Report 4679167-6 (Version None)
Quarter: 2005Q2

REPORT INFORMATION
  Report Type: 
  Country: None (occurrence: None)
  Receive Date: 20050526
  Receipt Date: 20050304
  Transmission Date: 20051028
  Serious: Yes (Hospitalization, Other)
  Sender: FDA-Public Use
  Company Number: WAES 0503USA00773

PATIENT
  Age: 65 Year
  Sex: Male
  Weight: 128.8216 kg

DRUGS (3)
  1. VYTORIN [Suspect]
     Indication: HYPERLIPIDAEMIA
     Dosage: 10-20 MG/DAILY/PO
     Route: 048
     Dates: start: 20050118, end: 20050226
  2. PREVACID [Concomitant]
  3. ASPIRIN [Concomitant]

REACTIONS (1)
  - PANCREATITIS [None]
